FAERS Safety Report 10062179 (Version 2)
Quarter: 2014Q2

REPORT INFORMATION
  Report Type: Spontaneous
  Country: US (occurrence: US)
  Receive Date: 20140407
  Receipt Date: 20140613
  Transmission Date: 20141212
  Serious: Yes (Other)
  Sender: FDA-Public Use
  Company Number: US-PFIZER INC-2014096898

PATIENT
  Age: 70 Year
  Sex: Female
  Weight: 100.68 kg

DRUGS (6)
  1. LIPITOR [Suspect]
     Indication: LOW DENSITY LIPOPROTEIN INCREASED
     Dosage: 40 MG, DAILY
     Route: 048
     Dates: start: 20060815
  2. LIPITOR [Suspect]
     Indication: CARDIOVASCULAR EVENT PROPHYLAXIS
  3. VYTORIN [Concomitant]
     Indication: HYPERCHOLESTEROLAEMIA
     Dosage: 10/40/80 MG
     Dates: start: 20060815, end: 20081008
  4. VYTORIN [Concomitant]
     Indication: HYPERLIPIDAEMIA
  5. SIMVASTATIN [Concomitant]
     Indication: HYPERCHOLESTEROLAEMIA
     Dosage: 10/40/80 MG
     Dates: start: 20060815, end: 20081008
  6. SIMVASTATIN [Concomitant]
     Indication: HYPERLIPIDAEMIA

REACTIONS (5)
  - Type 2 diabetes mellitus [Not Recovered/Not Resolved]
  - Kidney infection [Unknown]
  - Fatigue [Unknown]
  - Visual impairment [Unknown]
  - Neuropathy peripheral [Not Recovered/Not Resolved]
